FAERS Safety Report 4498925-4 (Version None)
Quarter: 2004Q4

REPORT INFORMATION
  Report Type: 
  Country: None (occurrence: None)
  Receive Date: 20041108
  Receipt Date: 20041025
  Transmission Date: 20050328
  Serious: Yes (Hospitalization, Other)
  Sender: FDA-Public Use
  Company Number: US-2004-034108

PATIENT
  Age: 34 Year
  Sex: Female
  Weight: 52.2 kg

DRUGS (8)
  1. BETASERON [Suspect]
     Indication: MULTIPLE SCLEROSIS
     Dosage: 8 MIU, EVERY 2D, SUBCUTANEOUS
     Route: 058
     Dates: start: 20031201
  2. NEURONTIN [Concomitant]
  3. AMBIEN [Concomitant]
  4. PLAQUINOL (HYDROXYCHLOROQUINE SULFATE) [Concomitant]
  5. PROVOGIL (MODAFINIL) [Concomitant]
  6. BEXTRA [Concomitant]
  7. EFFEXOR [Concomitant]
  8. MULTIVITAMINS (PANTHENOL, RETINOL) [Concomitant]

REACTIONS (8)
  - BONE MARROW DEPRESSION [None]
  - CHILLS [None]
  - HEADACHE [None]
  - INFLUENZA LIKE ILLNESS [None]
  - IRON DEFICIENCY [None]
  - LYMPHADENOPATHY [None]
  - VITAMIN B12 INCREASED [None]
  - WEIGHT DECREASED [None]
